FAERS Safety Report 6257627-4 (Version None)
Quarter: 2009Q3

REPORT INFORMATION
  Report Type: 
  Country: None (occurrence: None)
  Receive Date: 20090706
  Receipt Date: 20090625
  Transmission Date: 20100115
  Serious: Yes (Other)
  Sender: FDA-Public Use
  Company Number: ES-SANOFI-SYNTHELABO-A01200906677

PATIENT
  Age: 46 Year
  Sex: Female

DRUGS (5)
  1. OMEPRAZOL [Concomitant]
     Indication: DRUG USE FOR UNKNOWN INDICATION
     Dosage: UNK
     Route: 048
     Dates: start: 20090305
  2. NOLOTIL [Concomitant]
     Indication: DRUG USE FOR UNKNOWN INDICATION
     Dosage: UNK
     Route: 048
     Dates: start: 20090518
  3. ALMAX [Concomitant]
     Indication: DRUG USE FOR UNKNOWN INDICATION
     Dosage: UNK
     Route: 048
     Dates: start: 20090305
  4. DANATROL [Suspect]
     Indication: METRORRHAGIA
     Route: 048
     Dates: start: 20090219
  5. DANATROL [Suspect]
     Dosage: 400 MG
     Route: 048

REACTIONS (1)
  - HEPATITIS [None]
